FAERS Safety Report 24904864 (Version 2)
Quarter: 2025Q1

REPORT INFORMATION
  Report Type: Spontaneous
  Country: IN (occurrence: IN)
  Receive Date: 20250130
  Receipt Date: 20250321
  Transmission Date: 20250409
  Serious: Yes (Other)
  Sender: SANDOZ
  Company Number: IN-SANDOZ-SDZ2025IN000604

PATIENT
  Sex: Female

DRUGS (3)
  1. MYFORTIC [Suspect]
     Active Substance: MYCOPHENOLATE SODIUM
     Indication: Renal transplant
     Dosage: 360 MG, BID
     Route: 048
  2. TACROLIMUS [Suspect]
     Active Substance: TACROLIMUS
     Dosage: 1 MG, BID
     Route: 048
  3. TACROLIMUS [Suspect]
     Active Substance: TACROLIMUS
     Indication: Renal transplant
     Dosage: 2 MG, BID
     Route: 048

REACTIONS (13)
  - Chronic kidney disease [Unknown]
  - Hypoalbuminaemia [Unknown]
  - Urine output decreased [Unknown]
  - Blood pressure abnormal [Unknown]
  - Laboratory test abnormal [Unknown]
  - Chest discomfort [Unknown]
  - Infection susceptibility increased [Unknown]
  - Pain [Unknown]
  - Device related infection [Unknown]
  - Electrolyte imbalance [Unknown]
  - Hypertension [Unknown]
  - Anaemia [Unknown]
  - Off label use [Unknown]
